FAERS Safety Report 7768716-7 (Version None)
Quarter: 2011Q3

REPORT INFORMATION
  Report Type: 
  Country: None (occurrence: None)
  Receive Date: 20110922
  Receipt Date: 20100303
  Transmission Date: 20111222
  Serious: Yes (Other)
  Sender: FDA-Public Use
  Company Number: US-ASTRAZENECA-2009SE24893

PATIENT
  Sex: Male

DRUGS (5)
  1. NEURONTIN [Concomitant]
     Dates: start: 20010522
  2. DEPAKOTE [Concomitant]
     Dates: start: 20010522
  3. DIAZEPAM [Concomitant]
     Dates: start: 20010609
  4. SEROQUEL [Suspect]
     Route: 048
     Dates: start: 20010522
  5. GEODON [Concomitant]
     Dates: start: 20020222

REACTIONS (2)
  - DIABETIC KETOACIDOSIS [None]
  - DIABETES MELLITUS [None]
